FAERS Safety Report 8106326-2 (Version None)
Quarter: 2012Q1

REPORT INFORMATION
  Report Type: 
  Country: None (occurrence: None)
  Receive Date: 20120202
  Receipt Date: 20120125
  Transmission Date: 20120608
  Serious: Yes (Other)
  Sender: FDA-Public Use
  Company Number: US-BAYER-201039334NA

PATIENT
  Age: 19 Year
  Sex: Female

DRUGS (1)
  1. YASMIN [Suspect]
     Indication: CONTRACEPTION
     Dosage: UNK
     Route: 048
     Dates: start: 20020601, end: 20021101

REACTIONS (8)
  - GALLBLADDER DISORDER [None]
  - ANAEMIA [None]
  - HEPATIC NEOPLASM [None]
  - CHOLELITHIASIS [None]
  - CHOLESTEROSIS [None]
  - PREGNANCY [None]
  - PULMONARY EMBOLISM [None]
  - VAGINAL HAEMORRHAGE [None]
